FAERS Safety Report 22290118 (Version 1)
Quarter: 2023Q2

REPORT INFORMATION
  Report Type: Spontaneous
  Country: US (occurrence: US)
  Receive Date: 20230505
  Receipt Date: 20230505
  Transmission Date: 20230721
  Serious: No
  Sender: FDA-Public Use
  Company Number: US-BRISTOL-MYERS SQUIBB COMPANY-2023-063454

PATIENT
  Age: 70 Year
  Sex: Male

DRUGS (1)
  1. POMALYST [Suspect]
     Active Substance: POMALIDOMIDE
     Indication: Plasma cell myeloma
     Dosage: FREQUENCY: TAKE 1 CAPSULE BY MOUTH ONCE DAILY ON DAYS 1-14 OF 21 DAY CYCLE
     Route: 048
     Dates: start: 202304

REACTIONS (6)
  - Acne [Unknown]
  - Peripheral swelling [Unknown]
  - Muscle spasms [Unknown]
  - Dry skin [Unknown]
  - Neutrophil count decreased [Unknown]
  - Off label use [Unknown]
